FAERS Safety Report 24545224 (Version 1)
Quarter: 2024Q4

REPORT INFORMATION
  Report Type: Spontaneous
  Country: CN (occurrence: CN)
  Receive Date: 20241024
  Receipt Date: 20241024
  Transmission Date: 20250115
  Serious: Yes (Death, Other)
  Sender: AMGEN
  Company Number: CN-AMGEN-CHNSP2024206918

PATIENT

DRUGS (11)
  1. CARFILZOMIB [Suspect]
     Active Substance: CARFILZOMIB
     Indication: Plasma cell myeloma refractory
     Dosage: UNK
     Route: 065
  2. BORTEZOMIB [Suspect]
     Active Substance: BORTEZOMIB
     Indication: Plasma cell myeloma refractory
     Dosage: UNK
     Route: 065
  3. DARATUMUMAB [Suspect]
     Active Substance: DARATUMUMAB
     Indication: Plasma cell myeloma refractory
     Dosage: UNK
     Route: 065
  4. DEXAMETHASONE [Suspect]
     Active Substance: DEXAMETHASONE
     Indication: Plasma cell myeloma refractory
     Route: 065
  5. CYCLOPHOSPHAMIDE [Suspect]
     Active Substance: CYCLOPHOSPHAMIDE
     Indication: Plasma cell myeloma refractory
     Dosage: UNK
     Route: 065
  6. SELINEXOR [Suspect]
     Active Substance: SELINEXOR
     Indication: Plasma cell myeloma refractory
     Dosage: UNK
     Route: 065
  7. POMALIDOMIDE [Suspect]
     Active Substance: POMALIDOMIDE
     Indication: Plasma cell myeloma refractory
     Dosage: UNK
     Route: 065
  8. IXAZOMIB [Suspect]
     Active Substance: IXAZOMIB
     Indication: Plasma cell myeloma refractory
     Dosage: UNK
     Route: 065
  9. THALIDOMIDE [Suspect]
     Active Substance: THALIDOMIDE
     Indication: Plasma cell myeloma refractory
     Dosage: UNK
     Route: 065
  10. LENALIDOMIDE [Suspect]
     Active Substance: LENALIDOMIDE
     Indication: Plasma cell myeloma refractory
     Dosage: UNK
     Route: 065
  11. FLUDARABINE [Suspect]
     Active Substance: FLUDARABINE PHOSPHATE
     Indication: Plasma cell myeloma refractory
     Dosage: UNK
     Route: 065

REACTIONS (36)
  - Subarachnoid haemorrhage [Fatal]
  - Blood disorder [Unknown]
  - Cardiac failure [Recovered/Resolved]
  - Cytokine release syndrome [Unknown]
  - Hypokalaemia [Recovered/Resolved]
  - Plasma cell myeloma [Unknown]
  - Neutropenia [Unknown]
  - Thrombocytopenia [Unknown]
  - B-cell aplasia [Unknown]
  - Immune effector cell-associated neurotoxicity syndrome [Unknown]
  - Leukopenia [Unknown]
  - Plasma cell myeloma refractory [Unknown]
  - Lymphopenia [Unknown]
  - Herpes virus infection [Unknown]
  - Fungal infection [Unknown]
  - Bacterial infection [Unknown]
  - Anaemia [Unknown]
  - Dry skin [Unknown]
  - Dyspnoea [Recovered/Resolved]
  - Nausea [Unknown]
  - Diarrhoea [Unknown]
  - Constipation [Unknown]
  - Abdominal distension [Unknown]
  - Hyponatraemia [Unknown]
  - Hypocalcaemia [Unknown]
  - Hypoalbuminaemia [Unknown]
  - Productive cough [Unknown]
  - Sinus tachycardia [Unknown]
  - Pruritus [Unknown]
  - Rash [Unknown]
  - Nail disorder [Unknown]
  - Headache [Unknown]
  - Blood fibrinogen decreased [Unknown]
  - Blood alkaline phosphatase increased [Unknown]
  - Blood lactate dehydrogenase increased [Unknown]
  - Fatigue [Unknown]
